FAERS Safety Report 10068003 (Version 1)
Quarter: 2014Q2

REPORT INFORMATION
  Report Type: Spontaneous
  Country: FR (occurrence: FR)
  Receive Date: 20140409
  Receipt Date: 20140409
  Transmission Date: 20141212
  Serious: Yes (Hospitalization)
  Sender: FDA-Public Use
  Company Number: FR-PFIZER INC-2014094882

PATIENT
  Age: 36 Year
  Sex: Male

DRUGS (7)
  1. TAZOCILLINE [Suspect]
     Dosage: 1 DF, 3X/DAY
     Route: 041
     Dates: start: 20140212, end: 20140311
  2. TERCIAN [Concomitant]
  3. ESOMEPRAZOLE [Concomitant]
  4. NEFOPAM [Concomitant]
  5. ABILIFY [Concomitant]
  6. SERESTA [Concomitant]
  7. STILNOX [Concomitant]

REACTIONS (1)
  - Drug reaction with eosinophilia and systemic symptoms [Recovering/Resolving]
